FAERS Safety Report 9636080 (Version 4)
Quarter: 2015Q1

REPORT INFORMATION
  Report Type: Spontaneous
  Country: US (occurrence: US)
  Receive Date: 20131021
  Receipt Date: 20150205
  Transmission Date: 20150721
  Serious: No
  Sender: FDA-Public Use
  Company Number: US-PFIZER INC-2013296548

PATIENT
  Age: 58 Year
  Sex: Female

DRUGS (27)
  1. VITAMIN B6 [Concomitant]
     Active Substance: PYRIDOXINE HYDROCHLORIDE
     Indication: MIGRAINE PROPHYLAXIS
     Dosage: 50 MG, 1 TAB 1X/DAY
     Route: 048
     Dates: start: 20121017
  2. BENADRYL [Concomitant]
     Active Substance: DIPHENHYDRAMINE HYDROCHLORIDE
     Indication: MIGRAINE
     Dosage: 50 MG, AT ONSET OF THE MIGRAINE AND REPEAT 25MG (1 CAPSULE) 8 TO 12 HOURS LATER
     Route: 048
     Dates: start: 20121017
  3. RIBOFLAVIN [Concomitant]
     Active Substance: RIBOFLAVIN
     Indication: MIGRAINE PROPHYLAXIS
     Dosage: 400 MG, 1 TAB OR CAPSULE ONCE A DAY
     Route: 048
     Dates: start: 20140114
  4. PROPRANOLOL [Concomitant]
     Active Substance: PROPRANOLOL\PROPRANOLOL HYDROCHLORIDE
     Indication: MIGRAINE PROPHYLAXIS
     Dosage: 10 MG, 1 TAB 3 TIMES A DAY
     Route: 048
     Dates: start: 20140808
  5. LORAZEPAM. [Concomitant]
     Active Substance: LORAZEPAM
     Indication: ANXIETY
  6. PANCREAZE [Concomitant]
     Active Substance: PANCRELIPASE
     Dosage: 17,500 UNITS- 4,200UNITS-10000 UNITS CAPSULE, 2 CAPSULE ORALLY BEFORE MEALS AND SNACKS
     Route: 048
     Dates: start: 20130819
  7. HYDROCORTISONE. [Concomitant]
     Active Substance: HYDROCORTISONE
     Indication: ARTHROPOD BITE
     Dosage: UNK, 3X/DAY
     Route: 061
     Dates: start: 20140716
  8. NITROSTAT [Concomitant]
     Active Substance: NITROGLYCERIN
     Indication: ABDOMINAL PAIN UPPER
     Dosage: 0.4 MG, 1 TAB AT ONSET OF PANCREAS PAIN
     Route: 060
     Dates: start: 20131011
  9. MESALAMINE. [Concomitant]
     Active Substance: MESALAMINE
     Indication: COLITIS ULCERATIVE
     Dosage: 4G/60ML ENEMA, 60ML 1X/DAY(AT BEDTIME)
     Route: 054
     Dates: start: 20140124
  10. CLOBETASOL [Concomitant]
     Active Substance: CLOBETASOL
     Dosage: 0.05%, 2 TIMES A DAY AS NEEDED
     Route: 061
  11. KETOROLAC [Concomitant]
     Active Substance: KETOROLAC\KETOROLAC TROMETHAMINE
     Indication: PAIN
     Dosage: 10 MG, 1 TAB EVERY 6-8 HOURS AS NEEDED
     Route: 048
     Dates: start: 20140711
  12. LANSOPRAZOLE. [Concomitant]
     Active Substance: LANSOPRAZOLE
     Dosage: 30 MG, 1 CAP ONCE A DAY AS NEEDED
     Route: 048
     Dates: start: 20141014
  13. TRAMADOL [Concomitant]
     Active Substance: TRAMADOL
     Indication: PAIN
     Dosage: 50 MG, 1 TAB EVERY 4 HOURS AS NEEDED
     Route: 048
     Dates: start: 20120713
  14. DICYCLOMINE [Concomitant]
     Active Substance: DICYCLOMINE HYDROCHLORIDE
     Dosage: 20 MG, 1 CAP 4X/DAY AS NEEDED
     Route: 048
     Dates: start: 20131209
  15. LEVSIN/SL [Concomitant]
     Dosage: 0.125 MG, 1 TAB EVERY 4 HOURS AS NEEDED
     Route: 060
  16. RELPAX [Suspect]
     Active Substance: ELETRIPTAN HYDROBROMIDE
     Indication: MIGRAINE
     Dosage: 40 MG, 1 TAB AT ONSET OF MIGRAINE HEADACHE
     Route: 048
     Dates: start: 20140502
  17. ONDANSETRON [Concomitant]
     Active Substance: ONDANSETRON
     Indication: NAUSEA
     Dosage: 6 MG, 1 TO 2 TIMES A DAY
     Route: 048
     Dates: start: 20140605
  18. LUNESTA [Concomitant]
     Active Substance: ESZOPICLONE
     Indication: INSOMNIA
     Dosage: 2 MG, 1 TABLET ONCE DAILY AT BEDTIME AS NEEDED
     Route: 048
     Dates: start: 20140808
  19. LINZESS [Concomitant]
     Active Substance: LINACLOTIDE
     Indication: CONSTIPATION
     Dosage: 145 ?G, 1 CAP EVERY 3-4 DAYS
     Route: 048
     Dates: start: 20141014
  20. PHENERGAN [Concomitant]
     Active Substance: PROMETHAZINE HYDROCHLORIDE
     Indication: NAUSEA
     Dosage: 25 MG, ONE SUPPOSITORY EVERY 6 HOURS AS NEEDED
     Route: 054
  21. PHENERGAN [Concomitant]
     Active Substance: PROMETHAZINE HYDROCHLORIDE
     Indication: VOMITING
  22. MECLIZINE [Concomitant]
     Active Substance: MECLIZINE\MECLIZINE HYDROCHLORIDE
     Indication: DIZZINESS
     Dosage: 25 MG, 1 TAB 3 TIMES A DAY AS NEEDED
     Route: 048
     Dates: start: 20140530
  23. CARAFATE [Concomitant]
     Active Substance: SUCRALFATE
     Dosage: 1 G, 1 TAB DISSOLVE IN SMALL GLASS OF WATER (BEFORE MEALS AND AT BEDTIME) 4X/DAY
     Route: 048
     Dates: start: 20140925
  24. COENZYME Q10 [Concomitant]
     Active Substance: UBIDECARENONE
     Indication: MIGRAINE PROPHYLAXIS
     Dosage: 100 MG, 3X/DAY
     Route: 048
     Dates: start: 20141014
  25. ONDANSETRON [Concomitant]
     Active Substance: ONDANSETRON
     Indication: PANCREATITIS
  26. LORAZEPAM. [Concomitant]
     Active Substance: LORAZEPAM
     Indication: STRESS
     Dosage: 0.5 MG, 1 TAB UP TO 3 TIMES A DAY AS NEEDED
     Route: 048
     Dates: start: 20130412
  27. MAGNESIUM OXIDE. [Concomitant]
     Active Substance: MAGNESIUM OXIDE
     Indication: MIGRAINE PROPHYLAXIS
     Dosage: 250 MG, 1 TAB 2X/DAY
     Route: 048
     Dates: start: 20141114

REACTIONS (1)
  - Hypoaesthesia [Unknown]
